FAERS Safety Report 9047546 (Version 2)
Quarter: 2013Q1

REPORT INFORMATION
  Report Type: Spontaneous
  Country: US (occurrence: US)
  Receive Date: 20130204
  Receipt Date: 20130305
  Transmission Date: 20140127
  Serious: No
  Sender: FDA-Public Use
  Company Number: US-AMGEN-USASP2013004631

PATIENT
  Age: 67 Year
  Sex: Male
  Weight: 108.84 kg

DRUGS (1)
  1. ENBREL [Suspect]
     Indication: PSORIASIS
     Dosage: 50 MG, QWK
     Route: 058
     Dates: start: 20040805

REACTIONS (2)
  - Carpal tunnel syndrome [Not Recovered/Not Resolved]
  - Sensory loss [Not Recovered/Not Resolved]
